FAERS Safety Report 5059582-1 (Version None)
Quarter: 2006Q3

REPORT INFORMATION
  Report Type: 
  Country: None (occurrence: None)
  Receive Date: 20060718
  Receipt Date: 20060629
  Transmission Date: 20061208
  Serious: Yes (Hospitalization)
  Sender: FDA-Public Use
  Company Number: US200606006295

PATIENT
  Sex: Female

DRUGS (2)
  1. FORTEO [Suspect]
     Indication: OSTEOPOROSIS
     Dates: start: 20060530, end: 20060624
  2. FORTEO [Concomitant]

REACTIONS (9)
  - ABDOMINAL PAIN UPPER [None]
  - ARTHRALGIA [None]
  - BLOOD SODIUM DECREASED [None]
  - DIARRHOEA [None]
  - FAECES DISCOLOURED [None]
  - FEELING ABNORMAL [None]
  - NAUSEA [None]
  - OCCULT BLOOD POSITIVE [None]
  - PHARMACEUTICAL PRODUCT COMPLAINT [None]
